FAERS Safety Report 7388421-9 (Version None)
Quarter: 2011Q2

REPORT INFORMATION
  Report Type: 
  Country: None (occurrence: None)
  Receive Date: 20110401
  Receipt Date: 20110328
  Transmission Date: 20111010
  Serious: Yes (Life-Threatening, Hospitalization, Other)
  Sender: FDA-Public Use
  Company Number: PHHY2011US10400

PATIENT
  Sex: Female
  Weight: 93.878 kg

DRUGS (4)
  1. CYMBALTA [Concomitant]
     Dosage: 200 MG, QD
     Route: 048
  2. VITAMIN D [Concomitant]
     Dosage: 10 MG
     Route: 048
  3. RECLAST [Suspect]
     Indication: OSTEOPOROSIS
     Dosage: 5 MG/YEAR
     Route: 042
     Dates: start: 20110207
  4. CALCIUM [Concomitant]
     Dosage: 600 MG, TID
     Route: 048

REACTIONS (16)
  - SYNCOPE [None]
  - MUSCULOSKELETAL PAIN [None]
  - GRAND MAL CONVULSION [None]
  - PRESYNCOPE [None]
  - CONVULSION [None]
  - LOSS OF CONSCIOUSNESS [None]
  - BONE PAIN [None]
  - UNRESPONSIVE TO STIMULI [None]
  - MUSCLE RIGIDITY [None]
  - BLOOD PRESSURE DECREASED [None]
  - PAIN IN EXTREMITY [None]
  - ANAPHYLACTIC SHOCK [None]
  - DYSPNOEA [None]
  - ASTHMA [None]
  - OSTEOARTHRITIS [None]
  - INFUSION RELATED REACTION [None]
